FAERS Safety Report 11343577 (Version 1)
Quarter: 2015Q3

REPORT INFORMATION
  Report Type: Spontaneous
  Country: BR (occurrence: None)
  Receive Date: 20150804
  Receipt Date: 20150804
  Transmission Date: 20151125
  Serious: No
  Sender: FDA-Public Use
  Company Number: BR-TORRENT-00003029

PATIENT
  Age: 35 Year
  Sex: Female

DRUGS (3)
  1. DIOSMIN [Concomitant]
     Active Substance: DIOSMIN
  2. ALPRAZOLAM. [Concomitant]
     Active Substance: ALPRAZOLAM
  3. VENLIFT OD (INN:VENLAFAXINE HYDROCHLORIDE) [Suspect]
     Active Substance: VENLAFAXINE HYDROCHLORIDE
     Indication: DEPRESSION
     Route: 048
     Dates: start: 2013

REACTIONS (4)
  - Pain in extremity [None]
  - Condition aggravated [None]
  - Constipation [None]
  - Varicose vein operation [None]

NARRATIVE: CASE EVENT DATE: 2014
